FAERS Safety Report 5510118-8 (Version None)
Quarter: 2007Q4

REPORT INFORMATION
  Report Type: 
  Country: None (occurrence: None)
  Receive Date: 20071108
  Receipt Date: 20071102
  Transmission Date: 20080405
  Serious: Yes (Hospitalization)
  Sender: FDA-Public Use
  Company Number: JP-ASTRAZENECA-2007AP03302

PATIENT
  Age: 77 Year
  Sex: Female

DRUGS (2)
  1. TENORMIN [Suspect]
     Indication: HYPERTENSION
     Route: 048
     Dates: start: 20031101, end: 20070509
  2. NORVASC [Suspect]
     Indication: HYPERTENSION
     Route: 048
     Dates: start: 20031101

REACTIONS (3)
  - BRADYCARDIA [None]
  - DIZZINESS POSTURAL [None]
  - LOSS OF CONSCIOUSNESS [None]
